FAERS Safety Report 23036499 (Version 2)
Quarter: 2023Q4

REPORT INFORMATION
  Report Type: Report from Study
  Country: US (occurrence: US)
  Receive Date: 20231006
  Receipt Date: 20231024
  Transmission Date: 20240110
  Serious: No
  Sender: FDA-Public Use
  Company Number: US-JNJFOC-20230969342

PATIENT
  Age: 20 Year
  Sex: Female

DRUGS (5)
  1. SPRAVATO [Suspect]
     Active Substance: ESKETAMINE
     Indication: Depression
     Dates: start: 20220612
  2. SPRAVATO [Suspect]
     Active Substance: ESKETAMINE
     Indication: Major depression
     Dosage: 84 MG, 32 DOSES
     Dates: start: 20221230, end: 20230919
  3. SPRAVATO [Suspect]
     Active Substance: ESKETAMINE
     Dosage: RECENT DOSE
     Dates: start: 20230926, end: 20230926
  4. SPRAVATO [Suspect]
     Active Substance: ESKETAMINE
     Dosage: 56 MG, 6 DOSES
     Dates: start: 20221206, end: 20221223
  5. EFFEXOR [Concomitant]
     Active Substance: VENLAFAXINE HYDROCHLORIDE
     Indication: Major depression
     Route: 048
     Dates: start: 20220831

REACTIONS (2)
  - Psychogenic seizure [Recovered/Resolved]
  - Dehydration [Unknown]

NARRATIVE: CASE EVENT DATE: 20230926
